FAERS Safety Report 8162981-2 (Version None)
Quarter: 2012Q1

REPORT INFORMATION
  Report Type: 
  Country: None (occurrence: None)
  Receive Date: 20120224
  Receipt Date: 20120220
  Transmission Date: 20120608
  Serious: Yes (Other)
  Sender: FDA-Public Use
  Company Number: US-AMGEN-USASP2012005207

PATIENT
  Age: 1 Year
  Sex: Male

DRUGS (1)
  1. ENBREL [Suspect]
     Dosage: 50 MG, QWK
     Route: 064
     Dates: start: 20050101

REACTIONS (7)
  - ECZEMA [None]
  - BRONCHIAL HYPERREACTIVITY [None]
  - RHINORRHOEA [None]
  - COUGH [None]
  - UPPER RESPIRATORY TRACT INFECTION [None]
  - CROUP INFECTIOUS [None]
  - SINUSITIS [None]
